FAERS Safety Report 22624883 (Version 8)
Quarter: 2024Q3

REPORT INFORMATION
  Report Type: Spontaneous
  Country: KR (occurrence: KR)
  Receive Date: 20230621
  Receipt Date: 20240904
  Transmission Date: 20241017
  Serious: Yes (Hospitalization)
  Sender: PFIZER
  Company Number: KR-PFIZER INC-PV202300106338

PATIENT
  Age: 66 Year
  Sex: Female

DRUGS (16)
  1. LORLATINIB [Suspect]
     Active Substance: LORLATINIB
     Dosage: 25MG 1T, QD
     Route: 048
  2. LORLATINIB [Suspect]
     Active Substance: LORLATINIB
     Dosage: 100 MG
     Route: 048
  3. LORLATINIB [Suspect]
     Active Substance: LORLATINIB
     Dosage: 75 MG
     Route: 048
  4. CODEINE PHOSPHATE [Concomitant]
     Active Substance: CODEINE PHOSPHATE
  5. CRESTOR [Concomitant]
     Active Substance: ROSUVASTATIN CALCIUM
     Dosage: 10 MG, 1X/DAY FOR 30 DAYS
  6. PROPACETAMOL HYDROCHLORIDE [Concomitant]
     Active Substance: PROPACETAMOL HYDROCHLORIDE
  7. DULACKHAN EASY [Concomitant]
  8. FENTANYL CITRATE [Concomitant]
     Active Substance: FENTANYL CITRATE
  9. HUONS HEPARIN SODIUM [Concomitant]
  10. HUONS LIDOCAINE HCL [Concomitant]
  11. JW NS [Concomitant]
  12. LASIX [Concomitant]
     Active Substance: FUROSEMIDE
     Dosage: 40 MG, 2X/DAY FOR 30 DAYS
  13. NEUSTATIN R [Concomitant]
  14. SPIRONOLACTONE [Concomitant]
     Active Substance: SPIRONOLACTONE
     Dosage: 50 MG, 1X/DAY FOR 30 DAYS
  15. TRAMADOL HYDROCHLORIDE [Concomitant]
     Active Substance: TRAMADOL HYDROCHLORIDE
  16. TYLENOL 8HR [Concomitant]
     Active Substance: ACETAMINOPHEN
     Dosage: UNK, 3X/DAY

REACTIONS (3)
  - Pleural effusion [Recovered/Resolved]
  - Dyspnoea [Unknown]
  - Off label use [Unknown]
